FAERS Safety Report 10098384 (Version 1)
Quarter: 2014Q2

REPORT INFORMATION
  Report Type: Spontaneous
  Country: IN (occurrence: None)
  Receive Date: 20140421
  Receipt Date: 20140421
  Transmission Date: 20141212
  Serious: Yes (Death, Hospitalization)
  Sender: FDA-Public Use
  Company Number: 2014P1003348

PATIENT
  Age: 12 Year
  Sex: Female

DRUGS (1)
  1. ALBENDAZOLE [Suspect]
     Indication: HELMINTHIC INFECTION
     Dosage: X1
     Route: 048
     Dates: start: 20120915, end: 20120915

REACTIONS (6)
  - Vomiting [None]
  - Cough [None]
  - Choking [None]
  - Fall [None]
  - Asphyxia [None]
  - Skin discolouration [None]
